FAERS Safety Report 11991689 (Version 1)
Quarter: 2016Q1

REPORT INFORMATION
  Report Type: Spontaneous
  Country: US (occurrence: US)
  Receive Date: 20160203
  Receipt Date: 20160203
  Transmission Date: 20160526
  Serious: No
  Sender: FDA-Public Use
  Company Number: US-JNJFOC-20151222597

PATIENT
  Age: 42 Year
  Sex: Male
  Weight: 71.22 kg

DRUGS (7)
  1. ADVIL [Concomitant]
     Active Substance: IBUPROFEN
     Indication: TOOTH INFECTION
     Dosage: 3 OR 4 AT A TIME
     Route: 065
     Dates: start: 201509
  2. PEPCID AC [Suspect]
     Active Substance: FAMOTIDINE
     Indication: PROPHYLAXIS AGAINST GASTROINTESTINAL ULCER
     Route: 048
  3. PRILOSEC [Concomitant]
     Active Substance: OMEPRAZOLE MAGNESIUM
     Indication: PRODUCT USED FOR UNKNOWN INDICATION
     Route: 065
  4. ADVIL [Concomitant]
     Active Substance: IBUPROFEN
     Indication: GINGIVAL SWELLING
     Dosage: 3 OR 4 AT A TIME
     Route: 065
     Dates: start: 201509
  5. PEPCID AC [Suspect]
     Active Substance: FAMOTIDINE
     Indication: GASTROOESOPHAGEAL REFLUX DISEASE
     Route: 048
  6. ADVIL [Concomitant]
     Active Substance: IBUPROFEN
     Indication: TOOTH INFECTION
     Route: 065
     Dates: start: 201509
  7. ADVIL [Concomitant]
     Active Substance: IBUPROFEN
     Indication: GINGIVAL SWELLING
     Route: 065
     Dates: start: 201509

REACTIONS (5)
  - Panic attack [Recovered/Resolved]
  - Gastric disorder [Recovered/Resolved]
  - Gastrooesophageal reflux disease [Recovered/Resolved]
  - Anxiety [Recovered/Resolved]
  - Weight decreased [Recovered/Resolved]
